FAERS Safety Report 12863614 (Version 1)
Quarter: 2016Q4

REPORT INFORMATION
  Report Type: Spontaneous
  Country: US (occurrence: US)
  Receive Date: 20161019
  Receipt Date: 20161019
  Transmission Date: 20170207
  Serious: Yes (Other)
  Sender: FDA-Public Use
  Company Number: US-SAOL THERAPEUTICS-2016SAO00895

PATIENT
  Age: 17 Year
  Sex: Female

DRUGS (1)
  1. LIORESAL [Suspect]
     Active Substance: BACLOFEN
     Dosage: 1500 ?G, \DAY
     Route: 037

REACTIONS (2)
  - Withdrawal syndrome [Not Recovered/Not Resolved]
  - Pseudomonas infection [Not Recovered/Not Resolved]

NARRATIVE: CASE EVENT DATE: 20161007
